FAERS Safety Report 14779125 (Version 8)
Quarter: 2021Q1

REPORT INFORMATION
  Report Type: Report from Study
  Country: FR (occurrence: FR)
  Receive Date: 20180419
  Receipt Date: 20210308
  Transmission Date: 20210419
  Serious: Yes (Death, Life-Threatening, Hospitalization, Other)
  Sender: FDA-Public Use
  Company Number: FR-PFIZER INC-2018157787

PATIENT
  Age: 75 Year
  Sex: Male
  Weight: 73 kg

DRUGS (21)
  1. TAHOR [Concomitant]
     Active Substance: ATORVASTATIN CALCIUM
     Indication: BLOOD CHOLESTEROL NORMAL
     Dosage: UNK
     Dates: end: 201801
  2. ALLOPURINOL. [Concomitant]
     Active Substance: ALLOPURINOL
     Indication: OSTEOARTHRITIS
     Dosage: UNK
     Dates: end: 201801
  3. VENTOLINE [SALBUTAMOL] [Concomitant]
     Active Substance: ALBUTEROL SULFATE
     Indication: ARRHYTHMIA
     Dosage: UNK
     Dates: start: 201703, end: 201801
  4. CORDARONE [Concomitant]
     Active Substance: AMIODARONE HYDROCHLORIDE
     Indication: ARRHYTHMIA
     Dosage: UNK
     Dates: end: 201801
  5. IMOVANE [Concomitant]
     Active Substance: ZOPICLONE
     Indication: INSOMNIA
  6. COUMADINE [Concomitant]
     Active Substance: WARFARIN SODIUM
     Indication: ARRHYTHMIA
     Dosage: UNK
     Dates: start: 2007, end: 201712
  7. ROCEPHINE [Concomitant]
     Active Substance: CEFTRIAXONE SODIUM
     Indication: INFECTION
     Dosage: UNK
     Dates: start: 201801, end: 201801
  8. MOPRAL [OMEPRAZOLE] [Concomitant]
     Active Substance: OMEPRAZOLE
     Indication: PROPHYLAXIS
     Dosage: UNK
     Dates: start: 201801, end: 201801
  9. JOSIR [Concomitant]
     Active Substance: TAMSULOSIN
     Indication: BENIGN PROSTATIC HYPERPLASIA
     Dosage: UNK
     Dates: end: 201801
  10. DOLIPRANE [Concomitant]
     Active Substance: ACETAMINOPHEN
     Indication: BONE PAIN
     Dosage: UNK
     Dates: start: 201703, end: 201801
  11. TOPALGIC [Concomitant]
     Indication: BONE PAIN
     Dosage: UNK
     Dates: start: 201709, end: 201801
  12. FLAGYL [Concomitant]
     Active Substance: METRONIDAZOLE\METRONIDAZOLE HYDROCHLORIDE
     Indication: INFECTION
     Dosage: UNK
     Dates: start: 201801, end: 201801
  13. INSULIN [Concomitant]
     Active Substance: INSULIN NOS
     Indication: HYPERGLYCAEMIA
     Dosage: UNK
     Dates: start: 201801, end: 201801
  14. XGEVA [Suspect]
     Active Substance: DENOSUMAB
     Indication: METASTASES TO BONE
     Dosage: UNK
     Dates: start: 201703, end: 201712
  15. CALCIPARINE [Concomitant]
     Active Substance: HEPARIN CALCIUM
     Indication: PROPHYLAXIS
     Dosage: UNK
     Dates: start: 201801, end: 201801
  16. TAVANIC [Concomitant]
     Active Substance: LEVOFLOXACIN
     Indication: INFECTION
     Dosage: UNK
     Dates: start: 201801, end: 201801
  17. EUPANTOL [Concomitant]
     Active Substance: PANTOPRAZOLE SODIUM
     Indication: INFECTION
     Dosage: UNK
     Dates: start: 201801, end: 201801
  18. SUNITINIB MALATE. [Suspect]
     Active Substance: SUNITINIB MALATE
     Dosage: 50 MG, DAILY 2 WEEKS OUT OF 3 WEEKS
     Dates: start: 201705, end: 20171227
  19. CIFLOX [CIPROFLOXACIN] [Concomitant]
     Active Substance: CIPROFLOXACIN
     Indication: INFECTION
     Dosage: UNK
     Dates: start: 200801, end: 201801
  20. DALACINE [CLINDAMYCIN HYDROCHLORIDE] [Concomitant]
     Active Substance: CLINDAMYCIN HYDROCHLORIDE
     Indication: INFECTION
     Dosage: UNK
     Dates: start: 201801, end: 201801
  21. RILMENIDINE [Concomitant]
     Active Substance: RILMENIDINE
     Indication: HYPERTENSION
     Dosage: UNK
     Dates: start: 2007, end: 201801

REACTIONS (7)
  - General physical health deterioration [Fatal]
  - Back pain [Not Recovered/Not Resolved]
  - Spinal deformity [Not Recovered/Not Resolved]
  - Cancer pain [Recovering/Resolving]
  - Weight decreased [Not Recovered/Not Resolved]
  - Sarcopenia [Fatal]
  - Osteonecrosis of jaw [Recovered/Resolved with Sequelae]

NARRATIVE: CASE EVENT DATE: 201707
